FAERS Safety Report 5720312-9 (Version None)
Quarter: 2008Q2

REPORT INFORMATION
  Report Type: 
  Country: None (occurrence: None)
  Receive Date: 20080428
  Receipt Date: 20080423
  Transmission Date: 20081010
  Serious: Yes (Disabling)
  Sender: FDA-Public Use
  Company Number: GB-PFIZER INC-2008023066

PATIENT
  Sex: Male

DRUGS (5)
  1. DOXAZOSIN MESYLATE [Suspect]
     Indication: HYPERTENSION
     Dosage: DAILY DOSE:2MG
     Route: 048
     Dates: start: 20021218, end: 20080222
  2. ADALAT [Concomitant]
     Dosage: DAILY DOSE:30MG
     Route: 048
  3. RAMIPRIL [Concomitant]
     Dosage: TEXT:1.25 MG - 10 MG DAILY
     Route: 048
  4. QUININE [Concomitant]
     Dosage: DAILY DOSE:300MEQ
     Route: 048
  5. ATENOLOL [Concomitant]
     Dosage: DAILY DOSE:100MG
     Route: 048

REACTIONS (1)
  - NEUROPATHY PERIPHERAL [None]
